FAERS Safety Report 17213107 (Version 2)
Quarter: 2020Q2

REPORT INFORMATION
  Report Type: Spontaneous
  Country: FR (occurrence: FR)
  Receive Date: 20191230
  Receipt Date: 20200501
  Transmission Date: 20200713
  Serious: Yes (Death, Hospitalization)
  Sender: FDA-Public Use
  Company Number: FR-ROCHE-2507241

PATIENT
  Age: 29 Year
  Sex: Female

DRUGS (1)
  1. RITUXIMAB. [Suspect]
     Active Substance: RITUXIMAB
     Indication: NEUROMYELITIS OPTICA SPECTRUM DISORDER
     Route: 041
     Dates: start: 201208, end: 201903

REACTIONS (2)
  - Ejection fraction decreased [Fatal]
  - Myocardial ischaemia [Fatal]

NARRATIVE: CASE EVENT DATE: 201911
